FAERS Safety Report 13295710 (Version 2)
Quarter: 2017Q1

REPORT INFORMATION
  Report Type: Report from Study
  Country: US (occurrence: US)
  Receive Date: 20170303
  Receipt Date: 20170330
  Transmission Date: 20170428
  Serious: No
  Sender: FDA-Public Use
  Company Number: US-ALEXION PHARMACEUTICALS INC.-A201701978

PATIENT
  Age: 60 Year
  Sex: Male

DRUGS (3)
  1. SOLIRIS [Suspect]
     Active Substance: ECULIZUMAB
     Indication: HAEMOLYTIC URAEMIC SYNDROME
     Dosage: UNK, INDUCTION
     Route: 042
     Dates: start: 20170205
  2. LORAZEPAM. [Concomitant]
     Active Substance: LORAZEPAM
     Indication: PRODUCT USED FOR UNKNOWN INDICATION
     Route: 065
  3. SOLIRIS [Suspect]
     Active Substance: ECULIZUMAB
     Dosage: 1200 MG, MAINTENANCE
     Route: 042

REACTIONS (6)
  - Hypertension [Unknown]
  - Fatigue [Unknown]
  - Vision blurred [Unknown]
  - Nausea [Unknown]
  - Headache [Unknown]
  - Dyspnoea [Unknown]
